FAERS Safety Report 18364517 (Version 2)
Quarter: 2020Q4

REPORT INFORMATION
  Report Type: Report from Study
  Country: MX (occurrence: MX)
  Receive Date: 20201009
  Receipt Date: 20201022
  Transmission Date: 20210114
  Serious: Yes (Other)
  Sender: FDA-Public Use
  Company Number: NVSC2020MX269002

PATIENT
  Age: 43 Year
  Sex: Male
  Weight: 102 kg

DRUGS (2)
  1. EXFORGE [Suspect]
     Active Substance: AMLODIPINE BESYLATE\VALSARTAN
     Dosage: 1 DF(320/5 MG), QD
     Route: 048
     Dates: start: 20200930
  2. EXFORGE [Suspect]
     Active Substance: AMLODIPINE BESYLATE\VALSARTAN
     Indication: HYPERTENSION
     Dosage: 1 DF (160/5 MG), QD
     Route: 048
     Dates: start: 200807

REACTIONS (5)
  - COVID-19 [Recovered/Resolved]
  - COVID-19 [Recovering/Resolving]
  - Chest pain [Recovering/Resolving]
  - Anxiety [Recovering/Resolving]
  - Blood pressure increased [Recovering/Resolving]

NARRATIVE: CASE EVENT DATE: 20200810
